FAERS Safety Report 4294497-8 (Version None)
Quarter: 2004Q1

REPORT INFORMATION
  Report Type: 
  Country: None (occurrence: None)
  Receive Date: 20040211
  Receipt Date: 20040123
  Transmission Date: 20041129
  Serious: No
  Sender: FDA-Public Use
  Company Number: USA040157422

PATIENT
  Age: 38 Year
  Sex: Female

DRUGS (1)
  1. SARAFEM [Suspect]
     Dosage: 20 MG/DAY
     Dates: start: 20010501, end: 20031101

REACTIONS (6)
  - CONFUSIONAL STATE [None]
  - NASOPHARYNGITIS [None]
  - PYREXIA [None]
  - SPEECH DISORDER [None]
  - TRANSIENT ISCHAEMIC ATTACK [None]
  - TREMOR [None]
